FAERS Safety Report 5414206-6 (Version None)
Quarter: 2007Q3

REPORT INFORMATION
  Report Type: 
  Country: None (occurrence: None)
  Receive Date: 20070814
  Receipt Date: 20070802
  Transmission Date: 20080115
  Serious: Yes (Other)
  Sender: FDA-Public Use
  Company Number: US-PFIZER INC-2007064736

PATIENT
  Sex: Female

DRUGS (8)
  1. NEURONTIN [Suspect]
  2. MIRAPEX [Suspect]
     Indication: RESTLESS LEGS SYNDROME
  3. CONTRACEPTIVE, UNSPECIFIED [Suspect]
  4. DARVOCET [Concomitant]
  5. SOMA [Concomitant]
  6. PREMARIN [Concomitant]
  7. EFFEXOR [Concomitant]
  8. LASIX [Concomitant]

REACTIONS (5)
  - FIBROMYALGIA [None]
  - HYPOAESTHESIA [None]
  - MUSCLE SPASMS [None]
  - MYALGIA [None]
  - WEIGHT INCREASED [None]
